FAERS Safety Report 10204663 (Version 1)
Quarter: 2014Q2

REPORT INFORMATION
  Report Type: Spontaneous
  Country: US (occurrence: None)
  Receive Date: 20140527
  Receipt Date: 20140527
  Transmission Date: 20141212
  Serious: Yes (Death)
  Sender: FDA-Public Use
  Company Number: None

PATIENT
  Age: 96 Year
  Sex: Male
  Weight: 65.9 kg

DRUGS (1)
  1. GLIPIZIDE [Suspect]
     Indication: DIABETES MELLITUS
     Route: 048
     Dates: start: 19970612, end: 20131009

REACTIONS (3)
  - Hypoglycaemia [None]
  - Renal disorder [None]
  - Unresponsive to stimuli [None]
